FAERS Safety Report 26081721 (Version 1)
Quarter: 2025Q4

REPORT INFORMATION
  Report Type: Spontaneous
  Country: US (occurrence: None)
  Receive Date: 20251124
  Receipt Date: 20251124
  Transmission Date: 20260117
  Serious: Yes (Death, Life-Threatening, Hospitalization)
  Sender: ORION
  Company Number: US-MLMSERVICE-20251114-PI712371-00218-1

PATIENT
  Age: 55 Year
  Sex: Female

DRUGS (1)
  1. METHOTREXATE [Suspect]
     Active Substance: METHOTREXATE
     Indication: Myositis

REACTIONS (11)
  - Epstein-Barr virus associated lymphoma [Fatal]
  - Haemophagocytic lymphohistiocytosis [Fatal]
  - Respiratory failure [Fatal]
  - Lymphoma [Fatal]
  - B-cell lymphoma [Fatal]
  - Haemodynamic instability [Fatal]
  - Pneumonia aspiration [Fatal]
  - Disseminated intravascular coagulation [Fatal]
  - Sepsis [Fatal]
  - Multiple organ dysfunction syndrome [Fatal]
  - Product use in unapproved indication [Unknown]
